FAERS Safety Report 5919988-2 (Version None)
Quarter: 2008Q4

REPORT INFORMATION
  Report Type: 
  Country: None (occurrence: None)
  Receive Date: 20081014
  Receipt Date: 20081007
  Transmission Date: 20090506
  Serious: Yes (Other)
  Sender: FDA-Public Use
  Company Number: 2008SP016660

PATIENT
  Age: 53 Year
  Sex: Female
  Weight: 81.1939 kg

DRUGS (2)
  1. PEG-INTRON [Suspect]
     Indication: HEPATITIS C
     Dosage: SC
     Route: 058
     Dates: start: 20080725
  2. RIBAVIRIN [Suspect]
     Indication: HEPATITIS C
     Dosage: PO
     Route: 048
     Dates: start: 20080725

REACTIONS (19)
  - ABDOMINAL DISTENSION [None]
  - ANAEMIA [None]
  - ASTHENIA [None]
  - CONSTIPATION [None]
  - DEPRESSION [None]
  - DRY MOUTH [None]
  - FATIGUE [None]
  - GASTROOESOPHAGEAL REFLUX DISEASE [None]
  - HAEMATEMESIS [None]
  - HYPERHIDROSIS [None]
  - HYPOPHAGIA [None]
  - MUSCLE DISORDER [None]
  - NAUSEA [None]
  - PAIN [None]
  - PYREXIA [None]
  - SLEEP DISORDER [None]
  - THIRST [None]
  - VOMITING [None]
  - WEIGHT DECREASED [None]
